FAERS Safety Report 13116879 (Version 4)
Quarter: 2021Q3

REPORT INFORMATION
  Report Type: Spontaneous
  Country: US (occurrence: US)
  Receive Date: 20170116
  Receipt Date: 20210812
  Transmission Date: 20211014
  Serious: No
  Sender: FDA-Public Use
  Company Number: US-PFIZER INC-2017016457

PATIENT
  Age: 57 Year
  Sex: Female
  Weight: 65 kg

DRUGS (2)
  1. IBRANCE [Suspect]
     Active Substance: PALBOCICLIB
     Indication: LUNG NEOPLASM MALIGNANT
     Dosage: 125 MG, CYCLIC (DAILY FOR 21 DAYS)
     Route: 048
     Dates: start: 20160912
  2. FEMARA [Concomitant]
     Active Substance: LETROZOLE
     Dosage: UNK UNK, 1X/DAY (2.5)
     Route: 048
     Dates: start: 201607

REACTIONS (5)
  - Off label use [Unknown]
  - Arthralgia [Unknown]
  - Nasopharyngitis [Recovering/Resolving]
  - Diarrhoea [Recovered/Resolved]
  - Neoplasm progression [Unknown]

NARRATIVE: CASE EVENT DATE: 20160912
